FAERS Safety Report 18148962 (Version 4)
Quarter: 2020Q4

REPORT INFORMATION
  Report Type: Report from Study
  Country: KR (occurrence: KR)
  Receive Date: 20200813
  Receipt Date: 20201008
  Transmission Date: 20210113
  Serious: Yes (Hospitalization)
  Sender: FDA-Public Use
  Company Number: KR-INCYTE CORPORATION-2020IN007767

PATIENT

DRUGS (6)
  1. VANCOMYCIN [Concomitant]
     Active Substance: VANCOMYCIN
     Indication: PRODUCT USED FOR UNKNOWN INDICATION
     Dosage: 3000 MG
     Route: 042
     Dates: start: 20200709, end: 20200711
  2. JAKAVI [Suspect]
     Active Substance: RUXOLITINIB
     Dosage: 10 MG, BID
     Route: 048
     Dates: start: 20200506, end: 20200601
  3. NAXEN S [Concomitant]
     Indication: PAIN IN EXTREMITY
     Dosage: 1 DF, BID
     Route: 065
     Dates: start: 20200708, end: 20200713
  4. JAKAVI [Suspect]
     Active Substance: RUXOLITINIB
     Indication: PRIMARY MYELOFIBROSIS
     Dosage: 15 MG, BID
     Route: 048
     Dates: start: 20200312, end: 20200505
  5. JAKAVI [Suspect]
     Active Substance: RUXOLITINIB
     Dosage: 5 MG, BID
     Route: 048
     Dates: start: 20200602
  6. VANCOMYCIN [Concomitant]
     Active Substance: VANCOMYCIN
     Dosage: 2000 MG
     Route: 042
     Dates: start: 20200712, end: 20200720

REACTIONS (11)
  - Post procedural erythema [Unknown]
  - Cardiac tamponade [Recovered/Resolved]
  - Lung infiltration [Unknown]
  - Pyomyositis [Recovered/Resolved]
  - Dyspnoea [Unknown]
  - Cellulitis [Recovering/Resolving]
  - Fasciitis [Unknown]
  - Cardiomegaly [Recovered/Resolved]
  - Necrotising fasciitis [Recovered/Resolved]
  - Weight increased [Unknown]
  - Phlebitis [Recovered/Resolved]

NARRATIVE: CASE EVENT DATE: 20200703
